FAERS Safety Report 14181623 (Version 1)
Quarter: 2017Q4

REPORT INFORMATION
  Report Type: Spontaneous
  Country: US (occurrence: US)
  Receive Date: 20171113
  Receipt Date: 20171113
  Transmission Date: 20180321
  Serious: Yes (Other)
  Sender: FDA-Public Use
  Company Number: US-TEVA-824376ACC

PATIENT
  Sex: Female

DRUGS (1)
  1. ALENDRONATE SODIUM. [Suspect]
     Active Substance: ALENDRONATE SODIUM
     Indication: PROPHYLAXIS
     Dosage: 70 (UNITS UNSPECIFIED)
     Dates: start: 2013, end: 2013

REACTIONS (3)
  - Osteopenia [Unknown]
  - Osteoporosis [Unknown]
  - Fracture [Unknown]
